FAERS Safety Report 16586763 (Version 1)
Quarter: 2019Q3

REPORT INFORMATION
  Report Type: Spontaneous
  Country: US (occurrence: US)
  Receive Date: 20190717
  Receipt Date: 20190717
  Transmission Date: 20191004
  Serious: Yes (Other)
  Sender: FDA-Public Use
  Company Number: US-ANIPHARMA-2019-US-012238

PATIENT
  Age: 118 Month
  Sex: Female

DRUGS (3)
  1. POSACONAZOLE [Suspect]
     Active Substance: POSACONAZOLE
     Indication: MENINGITIS COCCIDIOIDES
     Dosage: 200 MG DAILY
  2. FLUCONAZOLE (NON-SPECIFIC) [Suspect]
     Active Substance: FLUCONAZOLE
     Indication: MENINGITIS COCCIDIOIDES
  3. FLUTICASONE. [Suspect]
     Active Substance: FLUTICASONE
     Indication: PRODUCT USED FOR UNKNOWN INDICATION
     Route: 055

REACTIONS (5)
  - Growth failure [Unknown]
  - Adrenal insufficiency [Unknown]
  - Cushingoid [Unknown]
  - Drug interaction [Unknown]
  - Osteoporosis [Unknown]
